FAERS Safety Report 7355498-6 (Version None)
Quarter: 2011Q1

REPORT INFORMATION
  Report Type: 
  Country: None (occurrence: None)
  Receive Date: 20110316
  Receipt Date: 20101129
  Transmission Date: 20110831
  Serious: Yes (Other)
  Sender: FDA-Public Use
  Company Number: A0898469A

PATIENT
  Age: 65 Year
  Sex: Male

DRUGS (1)
  1. AVANDIA [Suspect]
     Dosage: 4MG PER DAY
     Route: 048
     Dates: start: 20070214, end: 20080801

REACTIONS (5)
  - HYPERLIPIDAEMIA [None]
  - DYSPNOEA [None]
  - HYPOGLYCAEMIA [None]
  - FLUID RETENTION [None]
  - HYPERTENSION [None]
